FAERS Safety Report 6053036-1 (Version None)
Quarter: 2009Q1

REPORT INFORMATION
  Report Type: 
  Country: None (occurrence: None)
  Receive Date: 20090127
  Receipt Date: 20090116
  Transmission Date: 20090719
  Serious: Yes (Hospitalization, Other)
  Sender: FDA-Public Use
  Company Number: GB-JNJFOC-20090104329

PATIENT
  Sex: Female
  Weight: 58 kg

DRUGS (9)
  1. REMICADE [Suspect]
     Indication: RHEUMATOID ARTHRITIS
     Route: 042
  2. METHOTREXATE [Concomitant]
  3. PREDNISOLONE [Concomitant]
  4. FOLIC ACID [Concomitant]
  5. HRT [Concomitant]
  6. MULTI-VITAMINS [Concomitant]
  7. OMEPRAZOLE [Concomitant]
  8. ROFECOXIB [Concomitant]
  9. THYROXINE [Concomitant]

REACTIONS (1)
  - C-REACTIVE PROTEIN INCREASED [None]
